FAERS Safety Report 13402552 (Version 2)
Quarter: 2017Q4

REPORT INFORMATION
  Report Type: Spontaneous
  Country: US (occurrence: US)
  Receive Date: 20170404
  Receipt Date: 20171016
  Transmission Date: 20180320
  Serious: Yes (Hospitalization)
  Sender: FDA-Public Use
  Company Number: US-DSJP-DSU-2017-109996

PATIENT

DRUGS (10)
  1. MECLIZINE [Concomitant]
     Active Substance: MECLIZINE HYDROCHLORIDE
     Indication: PRODUCT USED FOR UNKNOWN INDICATION
     Dosage: 25 MG, UNK
  2. ATIVAN [Concomitant]
     Active Substance: LORAZEPAM
     Indication: PRODUCT USED FOR UNKNOWN INDICATION
     Dosage: 0.5 MG, UNK
  3. AMBIEN [Concomitant]
     Active Substance: ZOLPIDEM TARTRATE
     Indication: INSOMNIA
     Dosage: 10 MG AT BED TIME, PRN
  4. TRIBENZOR [Suspect]
     Active Substance: AMLODIPINE BESYLATE\HYDROCHLOROTHIAZIDE\OLMESARTAN MEDOXOMIL
     Indication: HYPERTENSION
     Dosage: 40/5/12.5 MG, QD
     Dates: start: 20121213, end: 2013
  5. CYMBALTA [Concomitant]
     Active Substance: DULOXETINE HYDROCHLORIDE
     Indication: PRODUCT USED FOR UNKNOWN INDICATION
     Dosage: 60 MG, UNK
  6. AZOR [Suspect]
     Active Substance: AMLODIPINE BESYLATE\OLMESARTAN MEDOXOMIL
     Indication: HYPERTENSION
     Dosage: 5/40 MG, UNK
     Dates: start: 20130326, end: 20140422
  7. ASPIRIN. [Concomitant]
     Active Substance: ASPIRIN
     Indication: PRODUCT USED FOR UNKNOWN INDICATION
     Dosage: 325 MG, QD
     Route: 048
  8. KLONOPIN [Concomitant]
     Active Substance: CLONAZEPAM
     Indication: INSOMNIA
     Dosage: 1 MG AT NIGHT, QD
  9. ANDROGEL [Concomitant]
     Active Substance: TESTOSTERONE
     Indication: PRODUCT USED FOR UNKNOWN INDICATION
     Dosage: 1.62 %, UNK
     Route: 061
  10. KLONOPIN [Concomitant]
     Active Substance: CLONAZEPAM
     Indication: ANXIETY

REACTIONS (6)
  - Dizziness [Unknown]
  - Malabsorption [Recovering/Resolving]
  - Large intestine polyp [Unknown]
  - Depression [Not Recovered/Not Resolved]
  - Anxiety [Not Recovered/Not Resolved]
  - Decreased appetite [Unknown]

NARRATIVE: CASE EVENT DATE: 2013
